FAERS Safety Report 7038566-8 (Version None)
Quarter: 2010Q4

REPORT INFORMATION
  Report Type: 
  Country: None (occurrence: None)
  Receive Date: 20101011
  Receipt Date: 20100727
  Transmission Date: 20110411
  Serious: Yes (Hospitalization, Other)
  Sender: FDA-Public Use
  Company Number: US-PFIZER INC-2007013174

PATIENT
  Sex: Male

DRUGS (7)
  1. NEURONTIN [Suspect]
     Indication: NERVE INJURY
     Dosage: 300 MG, UNK
     Dates: start: 20031205, end: 20040406
  2. NEURONTIN [Suspect]
     Dosage: 600 MG, 2X/DAY
     Route: 048
  3. NEURONTIN [Suspect]
     Dosage: 300 MG, UNK
     Dates: start: 20050101, end: 20070101
  4. SOMA [Concomitant]
     Dosage: 350 MG, EVERY 8 HOURS
     Dates: start: 20031201
  5. LEXAPRO [Concomitant]
     Dosage: UNK
  6. VALIUM [Concomitant]
     Indication: MUSCLE SPASMS
     Dosage: 5 MG, AS NEEDED
  7. LORTAB [Concomitant]
     Indication: PAIN
     Dosage: 10 MG, AS NEEDED
     Dates: start: 20031201

REACTIONS (3)
  - DEPRESSION [None]
  - DRUG INEFFECTIVE [None]
  - SUICIDE ATTEMPT [None]
